FAERS Safety Report 6540509-8 (Version None)
Quarter: 2010Q1

REPORT INFORMATION
  Report Type: 
  Country: None (occurrence: None)
  Receive Date: 20100118
  Receipt Date: 20100107
  Transmission Date: 20100710
  Serious: Yes (Hospitalization)
  Sender: FDA-Public Use
  Company Number: US-BIOGENIDEC-2008BI003794

PATIENT
  Age: 56 Year
  Sex: Female
  Weight: 58 kg

DRUGS (18)
  1. AVONEX [Suspect]
     Indication: MULTIPLE SCLEROSIS
     Route: 030
     Dates: start: 20061129, end: 20070401
  2. AVONEX [Suspect]
     Dates: start: 20070822
  3. ACTOS [Concomitant]
     Indication: DRUG USE FOR UNKNOWN INDICATION
  4. CYMBALTA [Concomitant]
     Indication: DRUG USE FOR UNKNOWN INDICATION
  5. ESTRADIAL [Concomitant]
     Indication: DRUG USE FOR UNKNOWN INDICATION
  6. FURADANTIN [Concomitant]
     Indication: DRUG USE FOR UNKNOWN INDICATION
  7. GLUCOPHAGE [Concomitant]
     Indication: DRUG USE FOR UNKNOWN INDICATION
  8. LACTULOSE [Concomitant]
     Indication: DRUG USE FOR UNKNOWN INDICATION
  9. LIDODERM [Concomitant]
     Indication: DRUG USE FOR UNKNOWN INDICATION
  10. LISINOPRIL [Concomitant]
     Indication: DIABETES MELLITUS
     Dates: end: 20090901
  11. MYLICON [Concomitant]
     Indication: DRUG USE FOR UNKNOWN INDICATION
  12. NASAREL [Concomitant]
     Indication: DRUG USE FOR UNKNOWN INDICATION
  13. SYNTHROID [Concomitant]
     Indication: DRUG USE FOR UNKNOWN INDICATION
  14. TOPAMAX [Concomitant]
     Indication: DRUG USE FOR UNKNOWN INDICATION
  15. XALATAN [Concomitant]
     Indication: DRUG USE FOR UNKNOWN INDICATION
  16. ZANAFLEX [Concomitant]
     Indication: DRUG USE FOR UNKNOWN INDICATION
  17. KLONOPIN [Concomitant]
     Indication: DRUG USE FOR UNKNOWN INDICATION
  18. DIAZEPAM [Concomitant]
     Indication: TENDON PAIN

REACTIONS (4)
  - CHOLELITHIASIS [None]
  - FATIGUE [None]
  - PANCREATITIS [None]
  - TEMPERATURE INTOLERANCE [None]
